FAERS Safety Report 15015179 (Version 1)
Quarter: 2018Q2

REPORT INFORMATION
  Report Type: Spontaneous
  Country: US (occurrence: US)
  Receive Date: 20180530
  Receipt Date: 20180530
  Transmission Date: 20180711
  Serious: Yes (Life-Threatening)
  Sender: FDA-Public Use
  Company Number: None

PATIENT
  Age: 19 Year
  Sex: Male
  Weight: 135 kg

DRUGS (1)
  1. VYVANSE [Suspect]
     Active Substance: LISDEXAMFETAMINE DIMESYLATE
     Indication: ATTENTION DEFICIT/HYPERACTIVITY DISORDER

REACTIONS (10)
  - Multiple organ dysfunction syndrome [None]
  - Rhabdomyolysis [None]
  - Disseminated intravascular coagulation [None]
  - Heat stroke [None]
  - Renal failure [None]
  - Respiratory failure [None]
  - Unevaluable event [None]
  - Acidosis [None]
  - Hypoxia [None]
  - Cardiomyopathy [None]

NARRATIVE: CASE EVENT DATE: 20180529
